FAERS Safety Report 16641977 (Version 1)
Quarter: 2019Q3

REPORT INFORMATION
  Report Type: Spontaneous
  Country: ID (occurrence: ID)
  Receive Date: 20190729
  Receipt Date: 20190729
  Transmission Date: 20191004
  Serious: Yes (Death)
  Sender: FDA-Public Use
  Company Number: ID-BAYER-2019-137715

PATIENT
  Age: 68 Year
  Sex: Female

DRUGS (1)
  1. NEXAVAR [Suspect]
     Active Substance: SORAFENIB
     Indication: HEPATOCELLULAR CARCINOMA
     Dosage: 200 MG, BID
     Route: 048
     Dates: start: 201904, end: 20190713

REACTIONS (5)
  - Peripheral swelling [Recovering/Resolving]
  - Off label use [None]
  - Vomiting [None]
  - Food refusal [None]
  - Death [Fatal]

NARRATIVE: CASE EVENT DATE: 2019
